FAERS Safety Report 16965057 (Version 2)
Quarter: 2019Q4

REPORT INFORMATION
  Report Type: Spontaneous
  Country: JP (occurrence: JP)
  Receive Date: 20191028
  Receipt Date: 20191114
  Transmission Date: 20200122
  Serious: Yes (Hospitalization)
  Sender: FDA-Public Use
  Company Number: JP-AMGEN-JPNSP2019177842

PATIENT
  Sex: Female

DRUGS (2)
  1. EVENITY [Suspect]
     Active Substance: ROMOSOZUMAB-AQQG
     Indication: OSTEOPOROSIS
     Dosage: 210 MILLIGRAM
     Route: 058
     Dates: start: 20190419, end: 20190619
  2. INSULIN [Suspect]
     Active Substance: INSULIN NOS
     Indication: HYPERGLYCAEMIA
     Dosage: UNK
     Route: 065

REACTIONS (1)
  - Hyperglycaemia [Recovered/Resolved]

NARRATIVE: CASE EVENT DATE: 20190701
